FAERS Safety Report 4558443-1 (Version None)
Quarter: 2005Q1

REPORT INFORMATION
  Report Type: 
  Country: None (occurrence: None)
  Receive Date: 20050119
  Receipt Date: 20050104
  Transmission Date: 20050727
  Serious: Yes (Hospitalization, Other)
  Sender: FDA-Public Use
  Company Number: 2005S1000051

PATIENT
  Age: 56 Year
  Sex: Female
  Weight: 68.8 kg

DRUGS (12)
  1. XYOTAX (CT-2103) [Suspect]
     Indication: NON-SMALL CELL LUNG CANCER
     Dosage: 363 MG (210MG/M2, Q3WKS), INTRAVENOUS
     Route: 042
     Dates: start: 20040602, end: 20040929
  2. CISPLATIN [Suspect]
     Indication: NON-SMALL CELL LUNG CANCER
     Dosage: 130MG 875MG/M2,Q3WKS), INTRAVENOUS
     Route: 042
     Dates: start: 20040602, end: 20040929
  3. MAXZIDE [Suspect]
     Indication: HYPERTENSION
     Dosage: 37.5 MG/25MG QD, ORAL
     Route: 048
     Dates: end: 20040614
  4. DIVALPROEX SODIUM [Concomitant]
  5. LISINOPRIL [Concomitant]
  6. FLUPHENAZINE [Concomitant]
  7. BUPROPION HCL [Concomitant]
  8. MULTI-VITAMINS [Concomitant]
  9. MAGNESIUM [Concomitant]
  10. HYDROCODONE/ACETAMINOPHEN [Concomitant]
  11. ALBUTEROL [Concomitant]
  12. TRIAMCINOLONE ACETONIDE [Concomitant]

REACTIONS (6)
  - BLOOD PRESSURE INCREASED [None]
  - DYSPNOEA EXERTIONAL [None]
  - HYPERVOLAEMIA [None]
  - HYPONATRAEMIA [None]
  - OEDEMA PERIPHERAL [None]
  - THROMBOPHLEBITIS SUPERFICIAL [None]
